FAERS Safety Report 14244820 (Version 3)
Quarter: 2017Q4

REPORT INFORMATION
  Report Type: Report from Study
  Country: US (occurrence: US)
  Receive Date: 20171201
  Receipt Date: 20171227
  Transmission Date: 20180321
  Serious: Yes (Death, Hospitalization)
  Sender: FDA-Public Use
  Company Number: US-ACTELION-A-NJ2016-135332

PATIENT
  Age: 60 Year
  Sex: Female
  Weight: 79.82 kg

DRUGS (4)
  1. REMODULIN [Concomitant]
     Active Substance: TREPROSTINIL
  2. SILDENAFIL. [Concomitant]
     Active Substance: SILDENAFIL
  3. OPSUMIT [Suspect]
     Active Substance: MACITENTAN
     Indication: PULMONARY ARTERIAL HYPERTENSION
     Dosage: 10 MG, QD
     Route: 048
     Dates: start: 20160407
  4. WARFARIN [Concomitant]
     Active Substance: WARFARIN

REACTIONS (18)
  - Myalgia [Unknown]
  - Peripheral swelling [Unknown]
  - Device infusion issue [Unknown]
  - Feeling hot [Unknown]
  - Device dislocation [Unknown]
  - Diarrhoea [Unknown]
  - Infusion site swelling [Unknown]
  - Hyperhidrosis [Unknown]
  - Nausea [Unknown]
  - Pain in jaw [Unknown]
  - Death [Fatal]
  - Device alarm issue [Unknown]
  - Cellulitis [Unknown]
  - Unevaluable event [Unknown]
  - Mobility decreased [Unknown]
  - Feeling jittery [Unknown]
  - Abdominal pain upper [Unknown]
  - Decreased appetite [Unknown]

NARRATIVE: CASE EVENT DATE: 20171215
